FAERS Safety Report 8109140-7 (Version None)
Quarter: 2012Q1

REPORT INFORMATION
  Report Type: 
  Country: None (occurrence: None)
  Receive Date: 20120202
  Receipt Date: 20120103
  Transmission Date: 20120608
  Serious: No
  Sender: FDA-Public Use
  Company Number: US-AMGEN-USASP2011068801

PATIENT
  Age: 24 Year
  Sex: Female

DRUGS (2)
  1. VITAMINS                           /00067501/ [Concomitant]
     Dosage: UNK
  2. ENBREL [Suspect]
     Indication: RHEUMATOID ARTHRITIS
     Dosage: 50 MG, QWK
     Route: 058
     Dates: start: 20101104, end: 20101201

REACTIONS (7)
  - INJECTION SITE RASH [None]
  - RHEUMATOID ARTHRITIS [None]
  - AMNIOTIC FLUID VOLUME DECREASED [None]
  - UTERINE CONTRACTIONS DURING PREGNANCY [None]
  - INJECTION SITE PRURITUS [None]
  - GESTATIONAL HYPERTENSION [None]
  - INJECTION SITE URTICARIA [None]
